FAERS Safety Report 18258624 (Version 1)
Quarter: 2020Q3

REPORT INFORMATION
  Report Type: Spontaneous
  Country: US (occurrence: US)
  Receive Date: 20200911
  Receipt Date: 20200911
  Transmission Date: 20201103
  Serious: Yes (Other)
  Sender: FDA-Public Use
  Company Number: US-PFIZER INC-2020351704

PATIENT
  Age: 32 Year
  Sex: Female

DRUGS (1)
  1. IBRANCE [Suspect]
     Active Substance: PALBOCICLIB
     Indication: BREAST CANCER
     Dosage: 75 MG, CYCLIC (ONCE DAILY FOR 21 DAYS THEN 7 DAYS OFF, BY MOUTH)
     Route: 048
     Dates: start: 202005

REACTIONS (1)
  - Neutropenia [Recovered/Resolved]
